FAERS Safety Report 7952874-5 (Version None)
Quarter: 2011Q4

REPORT INFORMATION
  Report Type: 
  Country: None (occurrence: None)
  Receive Date: 20111201
  Receipt Date: 20111122
  Transmission Date: 20120403
  Serious: Yes (Hospitalization)
  Sender: FDA-Public Use
  Company Number: US-BAYER-2010-006237

PATIENT
  Age: 36 Year
  Sex: Female
  Weight: 73.469 kg

DRUGS (7)
  1. YAZ [Suspect]
  2. YAZ [Suspect]
  3. YAZ [Suspect]
  4. YAZ [Suspect]
     Indication: PREMENSTRUAL SYNDROME
  5. YAZ [Suspect]
     Dosage: UNK
     Dates: end: 20090101
  6. YAZ [Suspect]
     Indication: CONTRACEPTION
     Dosage: UNK
     Route: 048
     Dates: start: 20080101
  7. YAZ [Suspect]

REACTIONS (9)
  - INJURY [None]
  - ANXIETY [None]
  - GENERAL PHYSICAL HEALTH DETERIORATION [None]
  - CHOLECYSTITIS CHRONIC [None]
  - GALLBLADDER DISORDER [None]
  - ABDOMINAL PAIN [None]
  - EMOTIONAL DISTRESS [None]
  - DYSPEPSIA [None]
  - DYSPNOEA [None]
